FAERS Safety Report 23179908 (Version 2)
Quarter: 2025Q3

REPORT INFORMATION
  Report Type: Report from Study
  Country: US (occurrence: US)
  Receive Date: 20231114
  Receipt Date: 20250724
  Transmission Date: 20251020
  Serious: Yes (Hospitalization)
  Sender: ROCHE
  Company Number: US-ROCHE-3340172

PATIENT
  Age: 76 Year
  Sex: Female

DRUGS (2)
  1. ESBRIET [Suspect]
     Active Substance: PIRFENIDONE
     Indication: Idiopathic pulmonary fibrosis
     Dosage: TAKE 2 TABLETS BY MOUTH TWICE A DAY
     Route: 048
  2. ESBRIET [Suspect]
     Active Substance: PIRFENIDONE
     Route: 048

REACTIONS (7)
  - Urinary tract infection [Unknown]
  - Off label use [Unknown]
  - Increased appetite [Unknown]
  - Fatigue [Unknown]
  - Nasal discomfort [Unknown]
  - Nasal congestion [Unknown]
  - Sinus disorder [Unknown]
